FAERS Safety Report 8772760 (Version 2)
Quarter: 2012Q4

REPORT INFORMATION
  Report Type: Report from Study
  Country: JP (occurrence: JP)
  Receive Date: 20120907
  Receipt Date: 20121023
  Transmission Date: 20130627
  Serious: Yes (Other)
  Sender: FDA-Public Use
  Company Number: JP-009507513-1208JPN010246

PATIENT
  Age: 63 Year
  Sex: Female
  Weight: 72 kg

DRUGS (8)
  1. PEGINTRON [Suspect]
     Indication: HEPATITIS C
     Dosage: 1.67 Microgram per kilogram, qw
     Route: 058
     Dates: start: 20120203, end: 20120217
  2. PEGINTRON [Suspect]
     Dosage: 1.5 Microgram per kilogram, qw
     Route: 058
     Dates: start: 20120203, end: 20120224
  3. REBETOL [Suspect]
     Indication: HEPATITIS C
     Dosage: 800 mg, qd
     Route: 048
     Dates: start: 20120203, end: 20120224
  4. TELAVIC [Suspect]
     Indication: HEPATITIS C
     Dosage: 2250 mg, qd
     Route: 048
     Dates: start: 20120203, end: 20120224
  5. TALION (BEPOTASTINE BESYLATE) [Concomitant]
     Indication: HEPATITIS C
     Dosage: 10 mg, qd
     Route: 048
     Dates: start: 20120206, end: 20120224
  6. TALION (BEPOTASTINE BESYLATE) [Concomitant]
     Dosage: UNK
     Route: 048
  7. NERISONA [Concomitant]
     Indication: HEPATITIS C
     Dosage: 10 g, qd
     Route: 061
     Dates: start: 20120206, end: 20120224
  8. NERISONA [Concomitant]
     Dosage: UNK
     Route: 061

REACTIONS (3)
  - Erythema [Unknown]
  - Decreased appetite [Not Recovered/Not Resolved]
  - Psychiatric symptom [Unknown]
